FAERS Safety Report 13920804 (Version 2)
Quarter: 2020Q1

REPORT INFORMATION
  Report Type: Spontaneous
  Country: US (occurrence: US)
  Receive Date: 20170830
  Receipt Date: 20200121
  Transmission Date: 20200409
  Serious: Yes (Hospitalization, Other)
  Sender: FDA-Public Use
  Company Number: US-BAYER-2017-128542

PATIENT
  Age: 64 Year
  Sex: Male

DRUGS (5)
  1. XARELTO [Suspect]
     Active Substance: RIVAROXABAN
     Indication: CEREBROVASCULAR ACCIDENT PROPHYLAXIS
     Dosage: 15 MG
     Route: 048
  2. SOTALOL. [Suspect]
     Active Substance: SOTALOL
     Indication: ACUTE KIDNEY INJURY
     Dosage: UNK
     Route: 048
     Dates: end: 20170609
  3. ACETYLSALICYLIC ACID [Suspect]
     Active Substance: ASPIRIN
     Indication: ANTICOAGULANT THERAPY
     Dosage: UNK
     Route: 048
     Dates: end: 20170609
  4. XARELTO [Suspect]
     Active Substance: RIVAROXABAN
     Indication: THROMBOSIS PROPHYLAXIS
  5. XARELTO [Suspect]
     Active Substance: RIVAROXABAN
     Indication: ATRIAL FIBRILLATION
     Dosage: 20 MG, UNK
     Route: 048
     Dates: start: 20130526, end: 20170609

REACTIONS (5)
  - Acute kidney injury [Unknown]
  - Internal haemorrhage [Unknown]
  - Haemorrhoidal haemorrhage [Unknown]
  - Haematuria [Unknown]
  - Joint effusion [Recovering/Resolving]

NARRATIVE: CASE EVENT DATE: 20150630
